FAERS Safety Report 25991872 (Version 1)
Quarter: 2025Q4

REPORT INFORMATION
  Report Type: Spontaneous
  Country: US (occurrence: None)
  Receive Date: 20251103
  Receipt Date: 20251103
  Transmission Date: 20260117
  Serious: Yes (unspecified)
  Sender: FDA-CTU
  Company Number: None

PATIENT
  Age: 61 Year
  Sex: Male
  Weight: 99 kg

DRUGS (5)
  1. DULOXETINE [Suspect]
     Active Substance: DULOXETINE
     Indication: Post-traumatic stress disorder
     Dosage: FREQUENCY : TWICE A DAY;?
     Route: 048
     Dates: start: 20151201, end: 20250701
  2. QUETIAPINE [Concomitant]
     Active Substance: QUETIAPINE
  3. PRAZOSIN [Concomitant]
     Active Substance: PRAZOSIN
  4. LISINOPRIL [Concomitant]
     Active Substance: LISINOPRIL
  5. MAGNESIUM [Concomitant]
     Active Substance: MAGNESIUM

REACTIONS (13)
  - Bradyphrenia [None]
  - Cognitive disorder [None]
  - Flat affect [None]
  - Decreased interest [None]
  - Withdrawal syndrome [None]
  - Electric shock sensation [None]
  - Musculoskeletal pain [None]
  - Myalgia [None]
  - Balance disorder [None]
  - Nausea [None]
  - Sleep disorder [None]
  - Hypersensitivity [None]
  - Affect lability [None]

NARRATIVE: CASE EVENT DATE: 20250701
